FAERS Safety Report 11743300 (Version 1)
Quarter: 2015Q4

REPORT INFORMATION
  Report Type: Spontaneous
  Country: US (occurrence: US)
  Receive Date: 20151116
  Receipt Date: 20151116
  Transmission Date: 20160304
  Serious: Yes (Other)
  Sender: FDA-Public Use
  Company Number: US-PFIZER INC-2015374823

PATIENT
  Sex: Male

DRUGS (1)
  1. PREPARATION H NOS [Suspect]
     Active Substance: COCOA BUTTER\PETROLATUM\PHENYLEPHRINE HYDROCHLORIDE\PHENYLEPHRINE HYDROCHLORIDE OR MINERAL OIL
     Dosage: UNK (ONCE OR TWICE A DAY FOR TWO WEEKS)

REACTIONS (4)
  - Haematochezia [Recovered/Resolved]
  - Pain [Recovered/Resolved]
  - Medication residue present [Recovered/Resolved]
  - Drug ineffective [Unknown]
